FAERS Safety Report 15385333 (Version 1)
Quarter: 2018Q3

REPORT INFORMATION
  Report Type: Spontaneous
  Country: US (occurrence: US)
  Receive Date: 20180907
  Receipt Date: 20180907
  Transmission Date: 20181010
  Serious: No
  Sender: FDA-Public Use
  Company Number: None

PATIENT
  Age: 38 Year
  Sex: Male
  Weight: 99.79 kg

DRUGS (2)
  1. N/A [Suspect]
     Active Substance: UNSPECIFIED INGREDIENT
     Indication: PSORIASIS
  2. ENBREL [Suspect]
     Active Substance: ETANERCEPT
     Indication: PSORIASIS
     Route: 058
     Dates: start: 201808

REACTIONS (3)
  - Abnormal dreams [None]
  - Lip dry [None]
  - Somnambulism [None]
